FAERS Safety Report 8803174 (Version 1)
Quarter: 2012Q4

REPORT INFORMATION
  Report Type: 
  Country: US (occurrence: US)
  Receive Date: 20120924
  Receipt Date: 20120924
  Transmission Date: 20130627
  Serious: Yes (Other)
  Sender: FDA-Public Use
  Company Number: US-NOVOPROD-360119

PATIENT
  Age: 20 Month
  Sex: Female
  Weight: 7.3 kg

DRUGS (1)
  1. NOVOSEVEN RT [Suspect]
     Indication: POST PROCEDURAL HAEMORRHAGE
     Dosage: 90 mcg/kg, UNK
     Route: 042

REACTIONS (1)
  - Thrombosis [Recovered/Resolved]
